FAERS Safety Report 23297815 (Version 1)
Quarter: 2023Q4

REPORT INFORMATION
  Report Type: Spontaneous
  Country: US (occurrence: None)
  Receive Date: 20231214
  Receipt Date: 20231214
  Transmission Date: 20240110
  Serious: No
  Sender: FDA-Public Use
  Company Number: None

PATIENT
  Age: 59 Year
  Sex: Female

DRUGS (1)
  1. MYCOPHENOLIC ACID [Suspect]
     Active Substance: MYCOPHENOLIC ACID

REACTIONS (6)
  - Decreased appetite [None]
  - Transplant [None]
  - Drug ineffective [None]
  - Therapy change [None]
  - Hepatic enzyme increased [None]
  - Cytomegalovirus infection [None]

NARRATIVE: CASE EVENT DATE: 20230701
